FAERS Safety Report 9665927 (Version 2)
Quarter: 2013Q4

REPORT INFORMATION
  Report Type: Spontaneous
  Country: US (occurrence: None)
  Receive Date: 20131031
  Receipt Date: 20131107
  Transmission Date: 20140711
  Serious: Yes (Hospitalization, Other)
  Sender: FDA-Public Use
  Company Number: AEGR000179

PATIENT
  Age: 21 Year
  Sex: Male

DRUGS (1)
  1. JUXTAPID [Suspect]
     Indication: TYPE IIA HYPERLIPIDAEMIA
     Dates: start: 20130222, end: 20130822

REACTIONS (2)
  - Thrombosis [None]
  - Joint injury [None]
